FAERS Safety Report 9122477 (Version 1)
Quarter: 2013Q1

REPORT INFORMATION
  Report Type: Spontaneous
  Country: US (occurrence: US)
  Receive Date: 20130227
  Receipt Date: 20130227
  Transmission Date: 20140127
  Serious: Yes (Other)
  Sender: FDA-Public Use
  Company Number: US-BAYER-2013-022421

PATIENT
  Age: 30 Year
  Sex: Female

DRUGS (1)
  1. MIRENA [Suspect]
     Indication: CONTRACEPTION
     Dosage: 20 MCG/24HR, CONT
     Route: 015
     Dates: start: 201003, end: 201302

REACTIONS (4)
  - Vaginal haemorrhage [Recovered/Resolved]
  - Menstruation irregular [None]
  - Coital bleeding [Recovered/Resolved]
  - Device expulsion [None]
